FAERS Safety Report 14972551 (Version 1)
Quarter: 2018Q2

REPORT INFORMATION
  Report Type: Spontaneous
  Country: IT (occurrence: IT)
  Receive Date: 20180605
  Receipt Date: 20180605
  Transmission Date: 20180711
  Serious: Yes (Other)
  Sender: FDA-Public Use
  Company Number: IT-BAUSCH-BL-2018-015675

PATIENT
  Age: 65 Year
  Sex: Male

DRUGS (2)
  1. METFORMIN [Suspect]
     Active Substance: METFORMIN HYDROCHLORIDE
     Indication: PRODUCT USED FOR UNKNOWN INDICATION
     Dosage: DOSE: 2 (UNIT UNSPECIFIED)?STRENGTH: 500 (UNIT UNSPECIFIED)
     Route: 065
     Dates: start: 20180301
  2. TRAJENTA [Suspect]
     Active Substance: LINAGLIPTIN
     Indication: PRODUCT USED FOR UNKNOWN INDICATION
     Dosage: DOSE: 2 (UNIT UNSPECIFIED)
     Route: 065
     Dates: start: 20180301

REACTIONS (1)
  - Pemphigoid [Unknown]
